FAERS Safety Report 9636785 (Version 2)
Quarter: 2013Q4

REPORT INFORMATION
  Report Type: Spontaneous
  Country: AT (occurrence: AT)
  Receive Date: 20131022
  Receipt Date: 20131031
  Transmission Date: 20140711
  Serious: Yes (Hospitalization)
  Sender: FDA-Public Use
  Company Number: AT-ROCHE-1291984

PATIENT
  Age: 69 Year
  Sex: Male

DRUGS (3)
  1. ZELBORAF [Suspect]
     Indication: MALIGNANT MELANOMA STAGE IV
     Dosage: REGULAR DOSING
     Route: 048
     Dates: start: 201307
  2. NEOTIGASON [Concomitant]
     Indication: SKIN CANCER
     Route: 048
     Dates: start: 20130911
  3. ENAHEXAL [Concomitant]
     Indication: HYPERTENSION
     Route: 048

REACTIONS (5)
  - C-reactive protein increased [Recovering/Resolving]
  - Pyrexia [Recovering/Resolving]
  - Pleural effusion [Unknown]
  - Pericardial effusion [Unknown]
  - Pericarditis [Recovering/Resolving]
